FAERS Safety Report 5529485-4 (Version None)
Quarter: 2007Q4

REPORT INFORMATION
  Report Type: 
  Country: None (occurrence: None)
  Receive Date: 20071129
  Receipt Date: 20070919
  Transmission Date: 20080405
  Serious: Yes (Other)
  Sender: FDA-Public Use
  Company Number: HQWYE261327JUL07

PATIENT
  Sex: Female
  Weight: 55.39 kg

DRUGS (5)
  1. BLINDED THERAPY [Suspect]
     Indication: PREMENSTRUAL SYNDROME
     Route: 048
     Dates: start: 20070410, end: 20070710
  2. PENICILLIN [Suspect]
     Indication: TOOTHACHE
     Dosage: UNKNOWN
     Route: 065
     Dates: start: 20070702, end: 20070709
  3. MORPHINE [Suspect]
     Indication: TOOTHACHE
     Dosage: UNKNOWN
     Route: 065
     Dates: start: 20070702, end: 20070706
  4. TYLENOL [Suspect]
     Indication: TOOTHACHE
     Dosage: UNKNOWN
     Route: 048
     Dates: start: 20070630, end: 20070702
  5. ADVIL LIQUI-GELS [Suspect]
     Indication: TOOTHACHE
     Dosage: 600 MG TOTAL DAILY DOSE
     Route: 048
     Dates: start: 20070702, end: 20070709

REACTIONS (2)
  - ABORTION SPONTANEOUS [None]
  - PREGNANCY [None]
